FAERS Safety Report 21879286 (Version 2)
Quarter: 2023Q1

REPORT INFORMATION
  Report Type: Spontaneous
  Country: US (occurrence: US)
  Receive Date: 20230118
  Receipt Date: 20230120
  Transmission Date: 20230417
  Serious: No
  Sender: FDA-Public Use
  Company Number: US-PFIZER INC-202300024279

PATIENT
  Age: 89 Year
  Sex: Female
  Weight: 100.7 kg

DRUGS (1)
  1. PAXLOVID [Suspect]
     Active Substance: NIRMATRELVIR\RITONAVIR
     Indication: COVID-19 treatment
     Dosage: [PF-07321332 150 MG]/[RITONAVIR 100 MG]

REACTIONS (5)
  - Pruritus [Unknown]
  - Insomnia [Unknown]
  - Skin erosion [Unknown]
  - Peripheral coldness [Unknown]
  - Eyelids pruritus [Unknown]
